FAERS Safety Report 12669248 (Version 2)
Quarter: 2022Q3

REPORT INFORMATION
  Report Type: Spontaneous
  Country: BE (occurrence: BE)
  Receive Date: 20160819
  Receipt Date: 20220909
  Transmission Date: 20221026
  Serious: Yes (Other)
  Sender: FDA-Public Use
  Company Number: None

PATIENT
  Age: 55 Year
  Sex: Male

DRUGS (16)
  1. MYCOPHENOLATE MOFETIL [Interacting]
     Active Substance: MYCOPHENOLATE MOFETIL
     Indication: Immunosuppression
     Dosage: UNK
     Route: 065
  2. MYCOPHENOLATE MOFETIL [Interacting]
     Active Substance: MYCOPHENOLATE MOFETIL
     Dosage: UNK, 500 MG, BID
     Route: 065
  3. MYCOPHENOLATE MOFETIL [Interacting]
     Active Substance: MYCOPHENOLATE MOFETIL
     Dosage: 1000 MILLIGRAM, QD
     Route: 065
  4. TACROLIMUS [Interacting]
     Active Substance: TACROLIMUS
     Indication: Immunosuppression
     Dosage: 0.5 MG, BID
     Route: 065
  5. TACROLIMUS [Interacting]
     Active Substance: TACROLIMUS
     Dosage: UNK, 1 MILLIGRAM, QD
     Route: 065
  6. METHYLPREDNISOLONE [Interacting]
     Active Substance: METHYLPREDNISOLONE
     Indication: Immunosuppression
     Dosage: UNK
     Route: 042
  7. METHYLPREDNISOLONE [Interacting]
     Active Substance: METHYLPREDNISOLONE
     Indication: Transplant rejection
     Dosage: UNK, 4 MG, QD
     Route: 042
  8. METHYLPREDNISOLONE [Interacting]
     Active Substance: METHYLPREDNISOLONE
     Dosage: UNK, 500 MILLIGRAM
     Route: 042
     Dates: start: 2012
  9. ABELCET [Interacting]
     Active Substance: AMPHOTERICIN B\DIMYRISTOYLPHOSPHATIDYLCHOLINE, DL-\DIMYRISTOYLPHOSPHATIDYLGLYCEROL, DL-
     Indication: Aspergilloma
     Dosage: UNK, 3 MILLIGRAM/KILOGRAM
     Route: 042
     Dates: start: 2012
  10. ABELCET [Interacting]
     Active Substance: AMPHOTERICIN B\DIMYRISTOYLPHOSPHATIDYLCHOLINE, DL-\DIMYRISTOYLPHOSPHATIDYLGLYCEROL, DL-
     Dosage: UNK, 5 MG/KG
     Route: 042
     Dates: start: 2012, end: 2012
  11. SULFAMETHOXAZOLE\TRIMETHOPRIM [Concomitant]
     Active Substance: SULFAMETHOXAZOLE\TRIMETHOPRIM
     Indication: Pseudomonas infection
     Dosage: UNK, BID, (SULFAMETHOXAZOLE 400MG, TRIMETHOPRIM 80MG)
     Route: 048
  12. METFORMIN [Concomitant]
     Active Substance: METFORMIN HYDROCHLORIDE
     Indication: Glucose tolerance impaired
     Dosage: UNK, 500 MG, BID
     Route: 048
     Dates: start: 2012
  13. METFORMIN [Concomitant]
     Active Substance: METFORMIN HYDROCHLORIDE
     Dosage: UNK, 1000 MILLIGRAM, QD
     Route: 048
     Dates: start: 2012
  14. CIPROFLOXACIN [Concomitant]
     Active Substance: CIPROFLOXACIN
     Indication: Sinusitis bacterial
     Dosage: 500 MG, BID
     Route: 048
     Dates: start: 2012
  15. CIPROFLOXACIN [Concomitant]
     Active Substance: CIPROFLOXACIN
     Dosage: UNK, 1000 MILLIGRAM, QD
     Route: 048
     Dates: start: 2012
  16. ZOLEDRONIC ACID [Concomitant]
     Active Substance: ZOLEDRONIC ACID
     Indication: Thoracic vertebral fracture
     Dosage: UNK
     Route: 065
     Dates: start: 2012

REACTIONS (15)
  - Aspergillus infection [Unknown]
  - Pseudomonas infection [Unknown]
  - Glucose tolerance impaired [Unknown]
  - Abscess jaw [Unknown]
  - Inappropriate antidiuretic hormone secretion [Unknown]
  - Transplant rejection [Unknown]
  - Sinusitis bacterial [Unknown]
  - Aspergilloma [Unknown]
  - Cytomegalovirus viraemia [Unknown]
  - Thoracic vertebral fracture [Unknown]
  - Stupor [Unknown]
  - Hyponatraemia [Unknown]
  - Drug interaction [Unknown]
  - Nephropathy toxic [Unknown]
  - Pneumonia pseudomonal [Unknown]

NARRATIVE: CASE EVENT DATE: 20120101
